FAERS Safety Report 5290672-4 (Version None)
Quarter: 2007Q2

REPORT INFORMATION
  Report Type: 
  Country: None (occurrence: None)
  Receive Date: 20070405
  Receipt Date: 20070405
  Transmission Date: 20071010
  Serious: Yes (Hospitalization)
  Sender: FDA-Public Use
  Company Number: None

PATIENT
  Age: 63 Year
  Sex: Male

DRUGS (8)
  1. LASIX [Suspect]
     Indication: HYPERTENSION
     Dosage: 20 MG PO QD
     Route: 048
  2. AZATHIOPRINE [Concomitant]
  3. PREDNISONE TAB [Concomitant]
  4. BACTRIM DS [Concomitant]
  5. ASPIRIN [Concomitant]
  6. ATORVASTATIN CALCIUM [Concomitant]
  7. LANTUS [Concomitant]
  8. 4LNC [Concomitant]

REACTIONS (3)
  - HYPERKALAEMIA [None]
  - HYPOVOLAEMIA [None]
  - RENAL FAILURE [None]
